FAERS Safety Report 4421879-3 (Version None)
Quarter: 2004Q3

REPORT INFORMATION
  Report Type: 
  Country: None (occurrence: None)
  Receive Date: 20040806
  Receipt Date: 20040806
  Transmission Date: 20050211
  Serious: Yes (Hospitalization)
  Sender: FDA-Public Use
  Company Number: None

PATIENT
  Age: 68 Year
  Sex: Male

DRUGS (2)
  1. IRINOTECAN [Suspect]
     Dates: start: 20040601, end: 20040601
  2. FLUOROURACIL [Suspect]
     Dates: start: 20040601, end: 20040601

REACTIONS (8)
  - ANOREXIA [None]
  - DEHYDRATION [None]
  - DIARRHOEA [None]
  - FEBRILE NEUTROPENIA [None]
  - HYPOKALAEMIA [None]
  - NAUSEA [None]
  - THROMBOCYTOPENIA [None]
  - WEIGHT DECREASED [None]
